FAERS Safety Report 9472113 (Version 3)
Quarter: 2013Q3

REPORT INFORMATION
  Report Type: Report from Study
  Country: US (occurrence: US)
  Receive Date: 20130823
  Receipt Date: 20130917
  Transmission Date: 20140515
  Serious: Yes (Death, Hospitalization, Other)
  Sender: FDA-Public Use
  Company Number: US-ALEXION PHARMACEUTICALS INC.-A201301984

PATIENT
  Sex: Male
  Weight: 55 kg

DRUGS (3)
  1. SOLIRIS [Suspect]
     Indication: HAEMOLYTIC URAEMIC SYNDROME
     Dosage: 900 UNK, Q2W
     Route: 042
     Dates: start: 20130618
  2. SOLIRIS [Suspect]
     Dosage: 900 MG, QW
     Route: 042
  3. IMMUNOSUPPRESSANTS [Concomitant]
     Dosage: UNK

REACTIONS (4)
  - Death [Fatal]
  - Metastases to central nervous system [Unknown]
  - Staphylococcal infection [Unknown]
  - Inappropriate schedule of drug administration [Unknown]
